FAERS Safety Report 8806905 (Version 2)
Quarter: 2013Q1

REPORT INFORMATION
  Report Type: Report from Study
  Country: US (occurrence: US)
  Receive Date: 20120925
  Receipt Date: 20130124
  Transmission Date: 20140127
  Serious: Yes (Hospitalization)
  Sender: FDA-Public Use
  Company Number: US-JNJFOC-20120909429

PATIENT
  Age: 17 Year
  Sex: Female
  Weight: 71.9 kg

DRUGS (11)
  1. REMICADE [Suspect]
     Indication: INFLAMMATORY BOWEL DISEASE
     Route: 042
  2. REMICADE [Suspect]
     Indication: INFLAMMATORY BOWEL DISEASE
     Route: 042
     Dates: start: 20120322
  3. REMICADE [Suspect]
     Indication: INFLAMMATORY BOWEL DISEASE
     Route: 042
     Dates: start: 20030721
  4. PREDNISONE [Concomitant]
  5. METHOTREXATE [Concomitant]
  6. FOLIC ACID [Concomitant]
  7. LANSOPRAZOLE [Concomitant]
  8. FERROUS SULFATE [Concomitant]
  9. ANTIHISTAMINE [Concomitant]
     Indication: PREMEDICATION
  10. ACETAMINOPHEN [Concomitant]
     Indication: PREMEDICATION
  11. STEROIDS NOS [Concomitant]
     Indication: PREMEDICATION

REACTIONS (1)
  - Herpes simplex [Not Recovered/Not Resolved]
